FAERS Safety Report 5820378-1 (Version None)
Quarter: 2008Q3

REPORT INFORMATION
  Report Type: 
  Country: None (occurrence: None)
  Receive Date: 20080724
  Receipt Date: 20070620
  Transmission Date: 20090109
  Serious: No
  Sender: FDA-Public Use
  Company Number: A0658931A

PATIENT
  Sex: Female

DRUGS (3)
  1. AVANDIA [Suspect]
     Dosage: 4MG SINGLE DOSE
     Route: 048
     Dates: start: 20070619
  2. DIOVAN [Concomitant]
  3. UNKNOWN MEDICATION [Concomitant]

REACTIONS (1)
  - DIARRHOEA [None]
